FAERS Safety Report 21522002 (Version 1)
Quarter: 2022Q4

REPORT INFORMATION
  Report Type: Other
  Country: None (occurrence: CA)
  Receive Date: 20221028
  Receipt Date: 20221028
  Transmission Date: 20230113
  Serious: Yes (Other)
  Sender: FDA-Public Use
  Company Number: CA-B.Braun Medical Inc.-2134276

PATIENT
  Age: 75 Year
  Sex: Female

DRUGS (1)
  1. METRONIDAZOLE [Suspect]
     Active Substance: METRONIDAZOLE

REACTIONS (7)
  - Drug ineffective [Unknown]
  - Diarrhoea [Unknown]
  - Neuropsychiatric symptoms [Unknown]
  - Somnolence [Unknown]
  - Nausea [Unknown]
  - Vomiting [Unknown]
  - Loss of consciousness [Unknown]
